FAERS Safety Report 6056988-9 (Version None)
Quarter: 2009Q1

REPORT INFORMATION
  Report Type: 
  Country: None (occurrence: None)
  Receive Date: 20090126
  Receipt Date: 20090126
  Transmission Date: 20090719
  Serious: Yes (Disabling, Other)
  Sender: FDA-Public Use
  Company Number: None

PATIENT
  Age: 55 Year
  Sex: Female
  Weight: 56.6996 kg

DRUGS (2)
  1. FOSAMAX [Suspect]
     Indication: OSTEOPOROSIS
     Dosage: 1 TABLET ONCE A WEEK
     Dates: start: 20060801, end: 20070801
  2. ALENDRONATE SODIUM [Suspect]
     Indication: OSTEOPOROSIS
     Dosage: 1 TABLET ONCE A WEEK
     Dates: start: 20070802, end: 20081215

REACTIONS (15)
  - ARTHRALGIA [None]
  - ASTHENIA [None]
  - BONE PAIN [None]
  - CHEST PAIN [None]
  - DRY MOUTH [None]
  - DYSPHAGIA [None]
  - EAR DISORDER [None]
  - FATIGUE [None]
  - HYPOKINESIA [None]
  - INSOMNIA [None]
  - MYALGIA [None]
  - OESOPHAGEAL DISORDER [None]
  - PRODUCT QUALITY ISSUE [None]
  - SWELLING [None]
  - TINNITUS [None]
